FAERS Safety Report 10213821 (Version 2)
Quarter: 2014Q2

REPORT INFORMATION
  Report Type: Spontaneous
  Country: US (occurrence: US)
  Receive Date: 20140603
  Receipt Date: 20140616
  Transmission Date: 20141212
  Serious: No
  Sender: FDA-Public Use
  Company Number: US-VERTEX PHARMACEUTICALS INC-2014-002571

PATIENT
  Sex: Male
  Weight: 81.63 kg

DRUGS (8)
  1. INCIVEK [Suspect]
     Indication: HEPATITIS C
     Dosage: UNK
     Route: 065
     Dates: start: 201109, end: 201207
  2. RIBAVIRIN [Suspect]
     Indication: HEPATITIS C
     Dosage: UNK
     Route: 065
     Dates: start: 201109, end: 201207
  3. PEGASYS [Suspect]
     Indication: HEPATITIS C
     Dosage: UNK
     Route: 065
     Dates: start: 201109, end: 201207
  4. ST MARY^S THISTLE [Concomitant]
     Dosage: 500 MG, QD
  5. VITAMIN B COMPLEX [Concomitant]
     Dosage: UNK, QD
  6. VITAMIN E DL-ALPHA [Concomitant]
     Dosage: 100 UT, QD
  7. L-ARGININE [Concomitant]
     Dosage: 1000 MG, TID
  8. VITAMIN C [Concomitant]
     Dosage: 100 MG, QD

REACTIONS (5)
  - Gingivitis [Not Recovered/Not Resolved]
  - Dry mouth [Recovering/Resolving]
  - Enamel anomaly [Not Recovered/Not Resolved]
  - Tooth extraction [Not Recovered/Not Resolved]
  - Depression [Unknown]
